FAERS Safety Report 6695541-0 (Version None)
Quarter: 2010Q2

REPORT INFORMATION
  Report Type: 
  Country: None (occurrence: None)
  Receive Date: 20100426
  Receipt Date: 20100416
  Transmission Date: 20101027
  Serious: Yes (Hospitalization)
  Sender: FDA-Public Use
  Company Number: US-BIOGENIDEC-2010BI003694

PATIENT
  Age: 48 Year
  Sex: Male

DRUGS (2)
  1. TYSABRI [Suspect]
     Indication: MULTIPLE SCLEROSIS
     Route: 042
     Dates: start: 20090213
  2. CARDURA [Concomitant]
     Dates: end: 20091218

REACTIONS (6)
  - BALANCE DISORDER [None]
  - DEHYDRATION [None]
  - FALL [None]
  - HYPOTENSION [None]
  - LARGE INTESTINE PERFORATION [None]
  - SYNCOPE [None]
